FAERS Safety Report 11568779 (Version 1)
Quarter: 2015Q3

REPORT INFORMATION
  Report Type: Spontaneous
  Country: US (occurrence: US)
  Receive Date: 20150929
  Receipt Date: 20150929
  Transmission Date: 20151125
  Serious: Yes (Hospitalization, Other)
  Sender: FDA-Public Use
  Company Number: US-DRREDDYS-USA/USA/15/0052997

PATIENT
  Age: 16 Year
  Sex: Male

DRUGS (1)
  1. LAMOTRIGINE TABLETS [Suspect]
     Active Substance: LAMOTRIGINE
     Indication: COMPLEX PARTIAL SEIZURES
     Route: 065

REACTIONS (5)
  - Treatment noncompliance [Unknown]
  - Cogan^s syndrome [Recovering/Resolving]
  - Seizure [Recovering/Resolving]
  - Tubulointerstitial nephritis and uveitis syndrome [Recovering/Resolving]
  - Idiosyncratic drug reaction [Recovering/Resolving]
